FAERS Safety Report 21915159 (Version 1)
Quarter: 2023Q1

REPORT INFORMATION
  Report Type: Spontaneous
  Country: US (occurrence: US)
  Receive Date: 20230126
  Receipt Date: 20230126
  Transmission Date: 20230417
  Serious: No
  Sender: FDA-Public Use
  Company Number: US-CATALYST PHARMACEUTICALS, INC-2022CAT00236

PATIENT
  Sex: Male
  Weight: 113.4 kg

DRUGS (11)
  1. FIRDAPSE [Suspect]
     Active Substance: AMIFAMPRIDINE PHOSPHATE
     Indication: Myasthenic syndrome
     Dosage: 10 MG, 3X/DAY
     Route: 048
  2. FIRDAPSE [Suspect]
     Active Substance: AMIFAMPRIDINE PHOSPHATE
     Dosage: 15 MG, 3X/DAY
     Route: 048
     Dates: start: 20190312
  3. ROSUVASTATIN [Concomitant]
     Active Substance: ROSUVASTATIN
     Dosage: 10 MG, 1X/DAY
  4. LOSARTAN [Concomitant]
     Active Substance: LOSARTAN
     Dosage: 100 MG, 1X/DAY
  5. FAMOTIDINE [Concomitant]
     Active Substance: FAMOTIDINE
     Dosage: 20 MG, 1X/DAY
  6. TERBINAFINE [Concomitant]
     Active Substance: TERBINAFINE
     Dosage: 250 MG, 1X/DAY
  7. CORICIDIN HBP [Concomitant]
     Active Substance: ACETAMINOPHEN\CHLORPHENIRAMINE MALEATE
     Dosage: UNK, AS NEEDED
  8. MEGA RED OMEGA 3 KRILL OIL [Concomitant]
     Dosage: 500 MG, 1X/DAY
  9. CALCIUM\VITAMIN D [Concomitant]
     Active Substance: CALCIUM\VITAMIN D
     Dosage: 1 DOSAGE UNITS, 1X/DAY
  10. PREDNISONE [Concomitant]
     Active Substance: PREDNISONE
     Dosage: 80 MG, 1X/DAY
  11. ASPIRIN [Concomitant]
     Active Substance: ASPIRIN
     Dosage: 81 MG, 1X/DAY

REACTIONS (2)
  - Hypoaesthesia oral [Recovered/Resolved]
  - Hypoaesthesia [Recovered/Resolved]
